FAERS Safety Report 20918915 (Version 1)
Quarter: 2022Q2

REPORT INFORMATION
  Report Type: Spontaneous
  Country: EG (occurrence: US)
  Receive Date: 20220606
  Receipt Date: 20220606
  Transmission Date: 20220721
  Serious: No
  Sender: FDA-Public Use
  Company Number: EG-TERSERA THERAPEUTICS LLC-2021TRS002678

PATIENT

DRUGS (1)
  1. ZOLADEX [Suspect]
     Active Substance: GOSERELIN ACETATE
     Indication: Product used for unknown indication
     Dosage: 10.8 MG
     Route: 065
     Dates: start: 201812

REACTIONS (2)
  - Flushing [Unknown]
  - Hyperhidrosis [Unknown]
